FAERS Safety Report 9721472 (Version 1)
Quarter: 2013Q4

REPORT INFORMATION
  Report Type: Spontaneous
  Country: RO (occurrence: RO)
  Receive Date: 20131129
  Receipt Date: 20131129
  Transmission Date: 20140711
  Serious: Yes (Other)
  Sender: FDA-Public Use
  Company Number: RO-ASTRAZENECA-2013SE86645

PATIENT
  Age: 47 Year
  Sex: Female

DRUGS (5)
  1. QUETIAPINE [Suspect]
     Indication: DEPRESSION
     Route: 048
  2. PEGINTERFERON [Suspect]
     Indication: HEPATITIS C
  3. RIBAVIRIN [Suspect]
     Indication: HEPATITIS C
  4. CLORAZEPATE [Suspect]
     Indication: DEPRESSION
  5. SERTRALINE [Suspect]
     Indication: DEPRESSION

REACTIONS (7)
  - Ventricular pre-excitation [Recovered/Resolved]
  - Wolff-Parkinson-White syndrome [Recovered/Resolved]
  - Syncope [Recovered/Resolved]
  - Multiple injuries [Unknown]
  - Supraventricular tachycardia [Recovered/Resolved]
  - Tilt table test positive [Recovered/Resolved]
  - Presyncope [Recovered/Resolved]
